FAERS Safety Report 19576763 (Version 1)
Quarter: 2021Q3

REPORT INFORMATION
  Report Type: Report from Study
  Country: US (occurrence: US)
  Receive Date: 20210719
  Receipt Date: 20210719
  Transmission Date: 20211014
  Serious: Yes (Hospitalization)
  Sender: FDA-Public Use
  Company Number: US-SA-2021SA232067

PATIENT
  Age: 50 Year
  Sex: Male

DRUGS (11)
  1. SARILUMAB [Suspect]
     Active Substance: SARILUMAB
     Indication: RHEUMATOID ARTHRITIS
     Dosage: 200 MG, QOW
     Route: 058
     Dates: start: 20210622
  2. FOLIC ACID. [Concomitant]
     Active Substance: FOLIC ACID
  3. ASPIRIN. [Concomitant]
     Active Substance: ASPIRIN
  4. ZESTRIL [Concomitant]
     Active Substance: LISINOPRIL
  5. METHOTREXATE. [Concomitant]
     Active Substance: METHOTREXATE
  6. CELEXA [CELECOXIB] [Concomitant]
     Active Substance: CELECOXIB
  7. DUONEB [Concomitant]
     Active Substance: ALBUTEROL SULFATE\IPRATROPIUM BROMIDE
  8. AUGMENTIN [Concomitant]
     Active Substance: AMOXICILLIN\CLAVULANATE POTASSIUM
  9. GABAPENTIN. [Concomitant]
     Active Substance: GABAPENTIN
  10. TOPROL XL [Concomitant]
     Active Substance: METOPROLOL SUCCINATE
  11. BRILINTA [Concomitant]
     Active Substance: TICAGRELOR

REACTIONS (4)
  - Vomiting [Unknown]
  - Nausea [Unknown]
  - Retching [Unknown]
  - Injection site swelling [Recovered/Resolved]

NARRATIVE: CASE EVENT DATE: 202107
